FAERS Safety Report 10782405 (Version 1)
Quarter: 2015Q1

REPORT INFORMATION
  Report Type: Spontaneous
  Country: US (occurrence: None)
  Receive Date: 20150209
  Receipt Date: 20150209
  Transmission Date: 20150721
  Serious: Yes (Death, Life-Threatening, Hospitalization)
  Sender: FDA-Public Use
  Company Number: None

PATIENT
  Age: 73 Year
  Sex: Female
  Weight: 61.24 kg

DRUGS (5)
  1. ISOVUE [Suspect]
     Active Substance: IOPAMIDOL
  2. FISH OIL [Concomitant]
     Active Substance: FISH OIL
  3. BLOOD PRESSURE MED [Concomitant]
  4. PLAVIX [Concomitant]
     Active Substance: CLOPIDOGREL BISULFATE
  5. CALCIUM SUPPLEMENT [Concomitant]
     Active Substance: CALCIUM

REACTIONS (6)
  - Contrast media reaction [None]
  - General physical health deterioration [None]
  - Renal disorder [None]
  - Haemorrhage [None]
  - Contraindicated drug administered [None]
  - Lung disorder [None]

NARRATIVE: CASE EVENT DATE: 20141027
